FAERS Safety Report 9267485 (Version 3)
Quarter: 2014Q3

REPORT INFORMATION
  Report Type: Report from Study
  Country: US (occurrence: US)
  Receive Date: 20130502
  Receipt Date: 20140806
  Transmission Date: 20150326
  Serious: Yes (Hospitalization)
  Sender: FDA-Public Use
  Company Number: US-MERCK-1304USA016742

PATIENT
  Age: 43 Year
  Sex: Male
  Weight: 86.4 kg

DRUGS (2)
  1. ASENAPINE MALEATE-BIPOLAR DISORDER [Suspect]
     Active Substance: ASENAPINE MALEATE
     Dosage: UNK UNK, BID
     Route: 060
     Dates: start: 20130316, end: 20130318
  2. ASENAPINE MALEATE-BIPOLAR DISORDER [Suspect]
     Active Substance: ASENAPINE MALEATE
     Indication: BIPOLAR I DISORDER
     Dosage: UNK UNK, BID
     Route: 060
     Dates: start: 20130311, end: 20130316

REACTIONS (1)
  - Depression [Recovered/Resolved]

NARRATIVE: CASE EVENT DATE: 20130318
